FAERS Safety Report 9381365 (Version 1)
Quarter: 2013Q3

REPORT INFORMATION
  Report Type: Spontaneous
  Country: US (occurrence: US)
  Receive Date: 20130703
  Receipt Date: 20130703
  Transmission Date: 20140515
  Serious: No
  Sender: FDA-Public Use
  Company Number: US-MYLANLABS-2013S1011713

PATIENT
  Age: 84 Year
  Sex: Female
  Weight: 64.86 kg

DRUGS (4)
  1. IBANDRONATE SODIUM TABLETS [Suspect]
     Indication: OSTEOPOROSIS
     Route: 048
     Dates: start: 201301, end: 201303
  2. DILTIAZEM [Concomitant]
     Indication: BLOOD PRESSURE INCREASED
     Route: 048
  3. HCTZ [Concomitant]
     Indication: BLOOD PRESSURE INCREASED
     Route: 048
  4. ACECOL [Concomitant]
     Indication: COLITIS ULCERATIVE
     Dosage: 400MG: 6 TIMES DAILY
     Route: 048
     Dates: start: 1990

REACTIONS (1)
  - Arthralgia [Recovering/Resolving]
